FAERS Safety Report 6167052-2 (Version None)
Quarter: 2009Q2

REPORT INFORMATION
  Report Type: 
  Country: None (occurrence: None)
  Receive Date: 20090424
  Receipt Date: 20090417
  Transmission Date: 20091009
  Serious: Yes (Hospitalization)
  Sender: FDA-Public Use
  Company Number: DE-BAYER-200817707GPV

PATIENT
  Age: 85 Year
  Sex: Male
  Weight: 67 kg

DRUGS (21)
  1. SORAFENIB [Suspect]
     Indication: MALIGNANT MELANOMA
     Dosage: TOTAL DAILY DOSE: 800 MG
     Route: 048
     Dates: start: 20080409, end: 20080710
  2. SORAFENIB [Suspect]
     Dosage: AS USED: 400 MG
     Route: 048
     Dates: start: 20080416, end: 20080703
  3. SORAFENIB [Suspect]
     Route: 048
     Dates: start: 20080416
  4. PEG-INTRON [Suspect]
     Indication: MALIGNANT MELANOMA
     Route: 058
     Dates: start: 20080409, end: 20080701
  5. PEG-INTRON [Suspect]
     Route: 058
     Dates: start: 20080516
  6. PEG-INTRON [Suspect]
     Route: 058
     Dates: start: 20080416, end: 20080701
  7. MOBLOC [Concomitant]
     Indication: HYPERTENSION
     Route: 065
     Dates: start: 20080328
  8. RED CELL PACKS [Concomitant]
     Indication: DRUG USE FOR UNKNOWN INDICATION
     Route: 065
     Dates: start: 20080430, end: 20080430
  9. RED CELL PACKS [Concomitant]
     Route: 065
     Dates: start: 20080408, end: 20080408
  10. RED CELL PACKS [Concomitant]
     Route: 065
     Dates: start: 20080704, end: 20080707
  11. RED CELL PACKS [Concomitant]
     Route: 065
     Dates: start: 20080710, end: 20080710
  12. RED CELL PACKS [Concomitant]
     Route: 065
     Dates: start: 20080606, end: 20080606
  13. ADALAT [Concomitant]
     Indication: HYPERTENSION
     Route: 048
     Dates: start: 20080710, end: 20080710
  14. PARACETAMOL [Concomitant]
     Indication: PYREXIA
     Route: 048
     Dates: start: 20080710, end: 20080710
  15. ALFUZOSIN HCL [Concomitant]
     Indication: DRUG USE FOR UNKNOWN INDICATION
     Dosage: ONGOING
     Route: 065
     Dates: start: 20080710, end: 20080712
  16. CLEXANE [Concomitant]
     Indication: DRUG USE FOR UNKNOWN INDICATION
     Route: 065
     Dates: start: 20080710, end: 20080712
  17. CLEXANE [Concomitant]
     Route: 065
     Dates: start: 20080805, end: 20080806
  18. METOCLOPRAMIDE [Concomitant]
     Indication: DRUG USE FOR UNKNOWN INDICATION
     Route: 065
     Dates: start: 20080416
  19. NORVASC [Concomitant]
     Indication: DRUG USE FOR UNKNOWN INDICATION
     Route: 065
  20. PLANUM [Concomitant]
     Indication: DRUG USE FOR UNKNOWN INDICATION
     Route: 065
  21. TAVOR [Concomitant]
     Indication: DRUG USE FOR UNKNOWN INDICATION
     Route: 065
     Dates: start: 20080327, end: 20080331

REACTIONS (2)
  - GENERAL PHYSICAL HEALTH DETERIORATION [None]
  - HAEMOGLOBIN DECREASED [None]
